FAERS Safety Report 10785716 (Version 1)
Quarter: 2015Q1

REPORT INFORMATION
  Report Type: Spontaneous
  Country: US (occurrence: None)
  Receive Date: 20150209
  Receipt Date: 20150209
  Transmission Date: 20150721
  Serious: Yes (Other)
  Sender: FDA-Public Use
  Company Number: US-TORRENT-0000088

PATIENT
  Sex: Female

DRUGS (1)
  1. DULOXETINE HCL [Suspect]
     Active Substance: DULOXETINE HYDROCHLORIDE
     Indication: PRODUCT USED FOR UNKNOWN INDICATION

REACTIONS (6)
  - Fatigue [None]
  - Pain [None]
  - Headache [None]
  - Crying [None]
  - Suicidal ideation [None]
  - Activities of daily living impaired [None]
